FAERS Safety Report 23061446 (Version 2)
Quarter: 2023Q4

REPORT INFORMATION
  Report Type: Spontaneous
  Country: PK (occurrence: PK)
  Receive Date: 20231013
  Receipt Date: 20231103
  Transmission Date: 20240110
  Serious: Yes (Hospitalization, Other)
  Sender: FDA-Public Use
  Company Number: PK-PFIZER INC-PV202300076684

PATIENT
  Age: 63 Year
  Sex: Female

DRUGS (16)
  1. ENBREL [Suspect]
     Active Substance: ETANERCEPT
     Indication: Rheumatoid arthritis
     Dosage: 50 MG, WEEKLY
     Route: 058
     Dates: start: 20230311
  2. ENBREL [Suspect]
     Active Substance: ETANERCEPT
     Dosage: UNK
     Route: 065
     Dates: start: 202304
  3. ACECLOFENAC [Suspect]
     Active Substance: ACECLOFENAC
     Indication: Product used for unknown indication
     Dosage: 100 MG (1+0+1+0, AFTER MEAL, 1+1 IN MORNING AND EVENING AFTER MEAL FOR 2 WEEKS)
     Route: 065
  4. LEFLUNOMIDE [Concomitant]
     Active Substance: LEFLUNOMIDE
     Dosage: 10 MG (1+0+0+0, 1 TAB IN MORNING)
  5. SURBEX Z [Concomitant]
     Dosage: UNK, 1X/DAY (1 X TABLETS, ONCE A DAY, AFTER MEAL)
  6. DELTACORTRIL [Concomitant]
     Active Substance: PREDNISOLONE
     Dosage: UNK (1+0+1+0, AFTER MEAL, 1+1 IN MORNING AND EVENING AFTER MEAL FOR 2 WEEKS, THEN 1+0)
  7. HYDROXYCHLOROQUINE SULFATE [Concomitant]
     Active Substance: HYDROXYCHLOROQUINE SULFATE
     Dosage: 200 MG (1+0+1+0, AFTER MEAL, 1+1 IN MORNING AND EVENING AFTER MEAL)
  8. Zeegap [Concomitant]
     Dosage: 75 MG (0+0+1+0, AFTER MEAL, 1 CAP IN EVENING AFTER MEAL)
  9. Nebrol [Concomitant]
     Dosage: 0+0+1+0, AFTER MEAL, 1 TAB IN EVENING AFTER MEAL
  10. FELDENE [Concomitant]
     Active Substance: PIROXICAM
     Dosage: UNK, 3X/DAY (APPLY LOCALLY, THREE TIMES A DAY)
  11. PANADOL [Concomitant]
     Active Substance: ACETAMINOPHEN
     Dosage: 500 MG (2+0+0+0, 2 TABLETS IN MORNING AS PER NEED)
  12. FOLIC ACID [Concomitant]
     Active Substance: FOLIC ACID
     Dosage: 5 MG, 1X/DAY (1 X TABLETS, ONCE A DAY)
  13. XOBIX [Concomitant]
     Dosage: 7.5 MG, 1X/DAY(0+0+1+0)
  14. NUBEROL [Concomitant]
     Dosage: 1 DF, (0+0+1+0, AFTER MEAL, 1 TAB IN EVENING AFTER MEAL CONTINUE)
  15. METRONIDAZOLE [Concomitant]
     Active Substance: METRONIDAZOLE
     Dosage: 400 MG (1+1+1+0, AFTER MEAL, 1+1+1 IN MORNING AFTERNOON AND EVENING CONTINUE)
  16. SPIROMIDE [Concomitant]
     Dosage: 20 MG (1+0+0+0 1 IN MORNING FOR 1 WEEK)

REACTIONS (18)
  - Condition aggravated [Unknown]
  - Arthralgia [Unknown]
  - Swelling [Unknown]
  - Oedema peripheral [Unknown]
  - Anal abscess [Recovered/Resolved]
  - Rheumatoid lung [Unknown]
  - Pain [Unknown]
  - Carpal tunnel syndrome [Unknown]
  - Joint swelling [Unknown]
  - Musculoskeletal stiffness [Unknown]
  - Anxiety [Unknown]
  - Blood creatinine abnormal [Unknown]
  - Folliculitis [Unknown]
  - Neck pain [Unknown]
  - Blood pressure increased [Unknown]
  - White blood cells urine positive [Unknown]
  - Product dose omission issue [Unknown]
  - Hepatic steatosis [Unknown]

NARRATIVE: CASE EVENT DATE: 20230801
